FAERS Safety Report 22028706 (Version 1)
Quarter: 2023Q1

REPORT INFORMATION
  Report Type: Report from Study
  Country: CA (occurrence: CA)
  Receive Date: 20230223
  Receipt Date: 20230223
  Transmission Date: 20230418
  Serious: Yes (Other)
  Sender: FDA-Public Use
  Company Number: CA-ABBVIE-4216667

PATIENT
  Age: 68 Year
  Sex: Female

DRUGS (2)
  1. HUMIRA [Suspect]
     Active Substance: ADALIMUMAB
     Indication: Psoriatic arthropathy
     Dosage: END DATE: 2022
     Route: 058
     Dates: start: 20131101
  2. HUMIRA [Suspect]
     Active Substance: ADALIMUMAB
     Dosage: START DATE WAS 2022
     Route: 058

REACTIONS (7)
  - Osteoarthritis [Recovering/Resolving]
  - Fear of injection [Unknown]
  - Knee arthroplasty [Unknown]
  - Wrong technique in product usage process [Unknown]
  - Rotator cuff syndrome [Unknown]
  - Arthralgia [Unknown]
  - Joint swelling [Unknown]

NARRATIVE: CASE EVENT DATE: 20221101
